FAERS Safety Report 11499704 (Version 1)
Quarter: 2015Q3

REPORT INFORMATION
  Report Type: Spontaneous
  Country: US (occurrence: None)
  Receive Date: 20150911
  Receipt Date: 20150911
  Transmission Date: 20151125
  Serious: Yes (Other)
  Sender: FDA-Public Use
  Company Number: None

PATIENT
  Age: 57 Year
  Sex: Male
  Weight: 107 kg

DRUGS (6)
  1. NEXIUM [Concomitant]
     Active Substance: ESOMEPRAZOLE MAGNESIUM
  2. HYDROCHLOROTHIAZIDE. [Concomitant]
     Active Substance: HYDROCHLOROTHIAZIDE
  3. CALCITRIOL. [Suspect]
     Active Substance: CALCITRIOL
  4. CITRACAL MAXIUMUM (CHOLECALCIFEROL + CALCIUM CITRATE) FILM-COATED TABLET [Suspect]
     Active Substance: CALCIUM CITRATE\CHOLECALCIFEROL
     Route: 048
     Dates: start: 2007
  5. ALLOPURINOL. [Concomitant]
     Active Substance: ALLOPURINOL
  6. CENTRUM SILVER [Concomitant]
     Active Substance: VITAMINS

REACTIONS (5)
  - Nervous system disorder [None]
  - Gastritis [None]
  - Osteopenia [None]
  - Intentional overdose [None]
  - Dyspnoea [None]

NARRATIVE: CASE EVENT DATE: 200706
